FAERS Safety Report 14426429 (Version 1)
Quarter: 2018Q1

REPORT INFORMATION
  Report Type: Spontaneous
  Country: SG (occurrence: SG)
  Receive Date: 20180123
  Receipt Date: 20180123
  Transmission Date: 20180509
  Serious: Yes (Disabling, Other)
  Sender: FDA-Public Use
  Company Number: SG-BAUSCH-BL-2018-001464

PATIENT
  Age: 26 Year
  Sex: Male

DRUGS (4)
  1. FOSCARNET [Concomitant]
     Active Substance: FOSCARNET
     Indication: NECROTISING RETINITIS
     Dosage: INTRAVITREAL INJECTION OF FOSCARNET (2.4 MG/0.1 ML
     Route: 050
  2. PREDNISOLONE. [Suspect]
     Active Substance: PREDNISOLONE
     Indication: OPTIC NEURITIS
     Route: 048
  3. METHYLPREDNISOLONE. [Suspect]
     Active Substance: METHYLPREDNISOLONE
     Route: 042
  4. METHYLPREDNISOLONE. [Suspect]
     Active Substance: METHYLPREDNISOLONE
     Indication: PAPILLOEDEMA
     Route: 042

REACTIONS (1)
  - Disease progression [Not Recovered/Not Resolved]
